FAERS Safety Report 4693099-9 (Version None)
Quarter: 2005Q2

REPORT INFORMATION
  Report Type: 
  Country: None (occurrence: None)
  Receive Date: 20050128
  Receipt Date: 20050128
  Transmission Date: 20051028
  Serious: Yes (Other)
  Sender: FDA-Public Use
  Company Number: None

PATIENT
  Age: 79 Year
  Sex: Female
  Weight: 63.9572 kg

DRUGS (1)
  1. IMDUR [Suspect]
     Indication: CORONARY ARTERY DISEASE

REACTIONS (5)
  - DYSPEPSIA [None]
  - GASTRIC DISORDER [None]
  - HEART RATE INCREASED [None]
  - NAUSEA [None]
  - PALPITATIONS [None]
